FAERS Safety Report 24391189 (Version 5)
Quarter: 2024Q4

REPORT INFORMATION
  Report Type: Report from Study
  Country: KR (occurrence: KR)
  Receive Date: 20241003
  Receipt Date: 20241210
  Transmission Date: 20250114
  Serious: Yes (Death, Hospitalization)
  Sender: AMGEN
  Company Number: KR-AMGEN-KORNI2024191636

PATIENT
  Age: 52 Year
  Sex: Male

DRUGS (19)
  1. TARLATAMAB [Suspect]
     Active Substance: TARLATAMAB
     Indication: Small cell lung cancer extensive stage
     Dosage: 1 MILLIGRAM, QD
     Route: 040
     Dates: start: 20240913, end: 20240913
  2. LEVOFLOXACIN [Concomitant]
     Active Substance: LEVOFLOXACIN
     Indication: Pneumonia
     Dosage: UNK
     Dates: start: 20240911
  3. TAZOPERAN [Concomitant]
     Indication: Pneumonia
     Dosage: UNK
     Dates: start: 20240911
  4. AMINO ACIDS\DEXTROSE\ELECTROLYTES NOS\SOYBEAN OIL\VITAMINS [Concomitant]
     Active Substance: AMINO ACIDS\DEXTROSE\ELECTROLYTES NOS\SOYBEAN OIL\VITAMINS
     Indication: Nutritional supplementation
     Dosage: UNK
  5. ORNITHINE ASPARTATE [Concomitant]
     Active Substance: ORNITHINE ASPARTATE
     Dosage: UNK
  6. Dulackhan easy [Concomitant]
     Dosage: UNK
  7. Pennel [Concomitant]
     Dosage: UNK
  8. ALGIN N [Concomitant]
  9. NALOXONE HYDROCHLORIDE\OXYCODONE HYDROCHLORIDE [Concomitant]
     Active Substance: NALOXONE HYDROCHLORIDE\OXYCODONE HYDROCHLORIDE
     Dosage: UNK
  10. Myungin amitriptyline hcl [Concomitant]
     Dosage: UNK
  11. PREGABALIN [Concomitant]
     Active Substance: PREGABALIN
  12. MAGNESIUM HYDROXIDE [Concomitant]
     Active Substance: MAGNESIUM HYDROXIDE
     Dosage: UNK
  13. EDOXABAN TOSYLATE [Concomitant]
     Active Substance: EDOXABAN TOSYLATE
     Dosage: UNK
  14. METFORMIN HYDROCHLORIDE [Concomitant]
     Active Substance: METFORMIN HYDROCHLORIDE
     Dosage: UNK
  15. FENTADUR [Concomitant]
     Dosage: 25MCG/H, PATCH
  16. PECFENT [Concomitant]
     Active Substance: FENTANYL CITRATE
     Dosage: UNK
  17. METHYLPREDNISOLONE [Concomitant]
     Active Substance: METHYLPREDNISOLONE
     Dosage: UNK
  18. Furix [Concomitant]
     Dosage: UNK
  19. K CAB [Concomitant]
     Dosage: UNK

REACTIONS (2)
  - Small cell lung cancer metastatic [Fatal]
  - Cytokine release syndrome [Recovered/Resolved]

NARRATIVE: CASE EVENT DATE: 20240914
